FAERS Safety Report 19948782 (Version 1)
Quarter: 2021Q4

REPORT INFORMATION
  Report Type: Spontaneous
  Country: US (occurrence: US)
  Receive Date: 20211008
  Receipt Date: 20211008
  Transmission Date: 20220304
  Serious: No
  Sender: FDA-Public Use
  Company Number: None

PATIENT
  Age: 42 Year
  Sex: Female

DRUGS (1)
  1. OMNITROPE [Suspect]
     Active Substance: SOMATROPIN
     Dosage: ?          OTHER DOSE:20UNITS;
     Route: 058
     Dates: start: 202110

REACTIONS (1)
  - Off label use [None]

NARRATIVE: CASE EVENT DATE: 20211008
